FAERS Safety Report 4578541-6 (Version None)
Quarter: 2005Q1

REPORT INFORMATION
  Report Type: 
  Country: None (occurrence: None)
  Receive Date: 20050207
  Receipt Date: 20050207
  Transmission Date: 20050727
  Serious: Yes (Life-Threatening, Hospitalization)
  Sender: FDA-Public Use
  Company Number: None

PATIENT
  Age: 14 Year
  Sex: Female

DRUGS (1)
  1. HEPARIN LOCK-FLUSH [Suspect]
     Indication: CENTRAL VENOUS CATHETERISATION
     Dosage: TIW
     Dates: start: 20041201

REACTIONS (4)
  - CATHETER RELATED INFECTION [None]
  - HYPOTENSION [None]
  - PSEUDOMONAS INFECTION [None]
  - PYREXIA [None]
